FAERS Safety Report 10471924 (Version 4)
Quarter: 2015Q2

REPORT INFORMATION
  Report Type: Report from Study
  Country: IT (occurrence: IT)
  Receive Date: 20140924
  Receipt Date: 20150608
  Transmission Date: 20150821
  Serious: Yes (Life-Threatening, Hospitalization)
  Sender: FDA-Public Use
  Company Number: IT-ROCHE-1464934

PATIENT
  Age: 61 Year
  Sex: Male
  Weight: 82 kg

DRUGS (16)
  1. BACTRIM [Concomitant]
     Active Substance: SULFAMETHOXAZOLE\TRIMETHOPRIM
     Dosage: 1 PILL 160/180
     Route: 065
     Dates: start: 20140925
  2. CYCLOPHOSPHAMIDE. [Suspect]
     Active Substance: CYCLOPHOSPHAMIDE
     Indication: DIFFUSE LARGE B-CELL LYMPHOMA
     Route: 065
  3. HYDROXYDAUNORUBICIN [Suspect]
     Active Substance: DOXORUBICIN
     Indication: DIFFUSE LARGE B-CELL LYMPHOMA
     Route: 065
  4. PIPERACILLIN/TAZOBACTAM [Concomitant]
     Active Substance: PIPERACILLIN SODIUM\TAZOBACTAM SODIUM
     Route: 065
     Dates: start: 20140909
  5. SELEPARINA [Concomitant]
     Active Substance: NADROPARIN CALCIUM
     Route: 065
     Dates: start: 20140725, end: 20140912
  6. PANTORC [Concomitant]
     Active Substance: PANTOPRAZOLE SODIUM
     Route: 065
     Dates: start: 20140909, end: 20140925
  7. RITUXIMAB [Suspect]
     Active Substance: RITUXIMAB
     Indication: DIFFUSE LARGE B-CELL LYMPHOMA
     Dosage: MOST RECENT DOSE PRIOR TO SAE ON 17/OCT/2014,
     Route: 058
     Dates: start: 20140813
  8. PREDNISONE. [Suspect]
     Active Substance: PREDNISONE
     Route: 065
     Dates: start: 20140910, end: 20140910
  9. SELEPARINA [Concomitant]
     Active Substance: NADROPARIN CALCIUM
     Route: 065
     Dates: start: 20140925
  10. BACTRIM [Concomitant]
     Active Substance: SULFAMETHOXAZOLE\TRIMETHOPRIM
     Dosage: 1 PILL, 160/800
     Route: 065
     Dates: start: 20140725, end: 20140909
  11. PANTOPRAZOLE [Concomitant]
     Active Substance: PANTOPRAZOLE SODIUM
     Route: 065
     Dates: start: 20140902, end: 20140908
  12. ONCOVIN [Suspect]
     Active Substance: VINCRISTINE SULFATE
     Indication: DIFFUSE LARGE B-CELL LYMPHOMA
     Route: 065
  13. PANTOPRAZOLE [Concomitant]
     Active Substance: PANTOPRAZOLE SODIUM
     Route: 065
     Dates: start: 20140725
  14. PREDNISONE. [Suspect]
     Active Substance: PREDNISONE
     Indication: DIFFUSE LARGE B-CELL LYMPHOMA
     Route: 065
     Dates: start: 20140909, end: 20140909
  15. ACICLOVIR [Concomitant]
     Active Substance: ACYCLOVIR
     Route: 065
     Dates: start: 20140725, end: 20140909
  16. LEVOFLOXACIN. [Concomitant]
     Active Substance: LEVOFLOXACIN
     Route: 065
     Dates: start: 20141010

REACTIONS (3)
  - White blood cell count decreased [Recovered/Resolved]
  - Neutropenia [Recovered/Resolved]
  - Chylothorax [Recovering/Resolving]

NARRATIVE: CASE EVENT DATE: 20140909
